FAERS Safety Report 5977668-1 (Version None)
Quarter: 2008Q4

REPORT INFORMATION
  Report Type: 
  Country: None (occurrence: None)
  Receive Date: 20081125
  Receipt Date: 20081113
  Transmission Date: 20090506
  Serious: Yes (Death, Other)
  Sender: FDA-Public Use
  Company Number: 2008-04286

PATIENT
  Age: 16 Year
  Sex: Female

DRUGS (7)
  1. VELCADE [Suspect]
     Indication: ACUTE LYMPHOCYTIC LEUKAEMIA
  2. VINCRISTINE [Suspect]
     Indication: ACUTE LYMPHOCYTIC LEUKAEMIA
  3. METHOTREXATE [Suspect]
     Indication: ACUTE LYMPHOCYTIC LEUKAEMIA
  4. DECADRON [Suspect]
     Indication: ACUTE LYMPHOCYTIC LEUKAEMIA
  5. PEGASPARGASE (PEGASPARGASE) [Suspect]
     Indication: ACUTE LYMPHOCYTIC LEUKAEMIA
  6. CYTARABINE [Suspect]
     Indication: ACUTE LYMPHOCYTIC LEUKAEMIA
  7. DOXORUBICIN HCL [Suspect]
     Indication: ACUTE LYMPHOCYTIC LEUKAEMIA

REACTIONS (13)
  - ANAPHYLACTIC REACTION [None]
  - BACILLUS INFECTION [None]
  - BACTERAEMIA [None]
  - HEPATIC FAILURE [None]
  - HEPATIC INFARCTION [None]
  - HYPERAMMONAEMIA [None]
  - LUNG INFILTRATION [None]
  - MUCORMYCOSIS [None]
  - MUSCULOSKELETAL CHEST PAIN [None]
  - NEUTROPENIA [None]
  - RHABDOMYOLYSIS [None]
  - SHOCK [None]
  - SPLENIC INFARCTION [None]
